FAERS Safety Report 15230107 (Version 1)
Quarter: 2018Q3

REPORT INFORMATION
  Report Type: Spontaneous
  Country: US (occurrence: US)
  Receive Date: 20180802
  Receipt Date: 20180802
  Transmission Date: 20181010
  Serious: Yes (Other)
  Sender: FDA-Public Use
  Company Number: US-ACCORD-065793

PATIENT
  Age: 38 Year
  Sex: Female
  Weight: 65.77 kg

DRUGS (6)
  1. ZOFRAN [Concomitant]
     Active Substance: ONDANSETRON HYDROCHLORIDE
     Dosage: STRENGTH: 8 MG?1 TABLET ORAL T.I.D. PRN
     Route: 048
  2. DOCETAXEL ACCORD [Suspect]
     Active Substance: DOCETAXEL
     Indication: BREAST CANCER
     Dosage: DOSE: 120 MG (AT 75 MG/M2) IV DAILY INTERMITTENT OVER 1 HOUR FOR 1 DAY IN NS 250 ML
     Route: 042
     Dates: start: 20130809, end: 20130919
  3. DOXORUBICIN [Suspect]
     Active Substance: DOXORUBICIN
     Indication: BREAST CANCER
     Dosage: 80 MG (AT 50 MG/M2) INTRAVENOUS DAILY INTERMITTENT OVER 30 MINUTES?FOR 1 DAY IN NS 100 ML
     Route: 042
  4. DEXAMETHASONE. [Concomitant]
     Active Substance: DEXAMETHASONE
     Dosage: STRENGTH: 10 MG?10 MG INJECTION ONCE INTERMITTENT OVER 20 MINUTES IN NS 50 ML
  5. DIFLUCAN [Concomitant]
     Active Substance: FLUCONAZOLE
     Dosage: STRENGTH: 100 MG ?1 TABLET ORAL DAILY FOR 10 DAYS
     Route: 048
  6. REGLAN [Concomitant]
     Active Substance: METOCLOPRAMIDE HYDROCHLORIDE
     Dosage: STRENGTH: 10 MG?1 TABLET ORAL T.I.D. PRN
     Route: 048

REACTIONS (1)
  - Alopecia [Not Recovered/Not Resolved]

NARRATIVE: CASE EVENT DATE: 201403
